FAERS Safety Report 8524986-9 (Version None)
Quarter: 2012Q3

REPORT INFORMATION
  Report Type: 
  Country: None (occurrence: None)
  Receive Date: 20120720
  Receipt Date: 20120427
  Transmission Date: 20120928
  Serious: Yes (Other)
  Sender: FDA-Public Use
  Company Number: US-JNJFOC-20120414185

PATIENT
  Age: 55 Year
  Sex: Female

DRUGS (8)
  1. NUCYNTA ER [Suspect]
     Indication: BACK PAIN
     Dosage: ONCE DAILY
     Route: 048
  2. NUCYNTA ER [Suspect]
     Dosage: AS NECESSARY
     Route: 048
  3. NUCYNTA ER [Suspect]
     Indication: PRODUCT USED FOR UNKNOWN INDICATION
     Dosage: ONCE EVERY 12 HOURS
     Route: 048
  4. NUCYNTA ER [Suspect]
     Dosage: ONCE EVERY 12 HOURS
     Route: 048
  5. NUCYNTA ER [Suspect]
     Dosage: AS NECESSARY
     Route: 048
  6. NUCYNTA ER [Suspect]
     Indication: SPINAL OSTEOARTHRITIS
     Dosage: ONCE DAILY
     Route: 048
  7. CYMBALTA [Suspect]
     Indication: PRODUCT USED FOR UNKNOWN INDICATION
     Route: 065
  8. CELEXA [Concomitant]
     Indication: DEPRESSION
     Route: 048

REACTIONS (3)
  - DYSARTHRIA [None]
  - PRODUCT QUALITY ISSUE [None]
  - CONFUSIONAL STATE [None]
